FAERS Safety Report 7938938-0 (Version None)
Quarter: 2011Q4

REPORT INFORMATION
  Report Type: 
  Country: None (occurrence: None)
  Receive Date: 20111124
  Receipt Date: 20111122
  Transmission Date: 20120403
  Serious: No
  Sender: FDA-Public Use
  Company Number: US-PFIZER INC-2011268651

PATIENT
  Sex: Female

DRUGS (10)
  1. CARDURA [Suspect]
     Indication: HYPERTENSION
     Dosage: UNK
  2. PROCARDIA XL [Concomitant]
     Dosage: UNK
  3. COZAAR [Suspect]
     Indication: HYPERTENSION
     Dosage: UNK
  4. PROCARDIA XL [Concomitant]
     Indication: HYPERTENSION
     Dosage: 30 MG, UNK
  5. DIOVAN [Suspect]
     Dosage: UNK
  6. LABETALOL [Concomitant]
     Dosage: UNK
  7. LOTREL [Suspect]
     Indication: HYPERTENSION
     Dosage: UNK
  8. CALAN [Suspect]
     Indication: HYPERTENSION
     Dosage: UNK
  9. BENICAR [Suspect]
     Dosage: UNK
  10. IRBESARTAN [Suspect]
     Dosage: UNK

REACTIONS (4)
  - SWELLING [None]
  - HEADACHE [None]
  - HYPERSENSITIVITY [None]
  - RASH [None]
